FAERS Safety Report 14664327 (Version 1)
Quarter: 2018Q1

REPORT INFORMATION
  Report Type: Spontaneous
  Country: US (occurrence: US)
  Receive Date: 20180319
  Receipt Date: 20180319
  Transmission Date: 20180509
  Serious: Yes (Other)
  Sender: FDA-Public Use
  Company Number: None

PATIENT
  Age: 49 Year
  Sex: Female
  Weight: 89.1 kg

DRUGS (17)
  1. GABAPENTIN. [Suspect]
     Active Substance: GABAPENTIN
     Indication: PAIN
     Dosage: ?          QUANTITY:600 TABLET(S);?
     Route: 048
  2. ALBUTEROL. [Concomitant]
     Active Substance: ALBUTEROL
  3. GABAPENTIN. [Suspect]
     Active Substance: GABAPENTIN
     Indication: FIBROMYALGIA
     Dosage: ?          QUANTITY:600 TABLET(S);?
     Route: 048
  4. GABAPENTIN. [Suspect]
     Active Substance: GABAPENTIN
     Indication: RESTLESS LEGS SYNDROME
     Dosage: ?          QUANTITY:600 TABLET(S);?
     Route: 048
  5. LORATADINE. [Concomitant]
     Active Substance: LORATADINE
  6. HYSINGLA ER [Concomitant]
     Active Substance: HYDROCODONE BITARTRATE
  7. SKELAXIN [Concomitant]
     Active Substance: METAXALONE
  8. ADVISOR [Concomitant]
  9. HYDROCODONE [Concomitant]
     Active Substance: HYDROCODONE
  10. ADVIL COLD AND SINUS [Concomitant]
     Active Substance: IBUPROFEN\PSEUDOEPHEDRINE HYDROCHLORIDE
  11. VOLTAIRE [Concomitant]
  12. PROLISTIC [Concomitant]
  13. CYMBALTA [Concomitant]
     Active Substance: DULOXETINE HYDROCHLORIDE
  14. YOUTH FACTOR [Concomitant]
  15. PROTOXIN [Concomitant]
     Active Substance: CLOSTRIDIUM BOTULINUM
  16. ADDERALL [Concomitant]
     Active Substance: AMPHETAMINE ASPARTATE\AMPHETAMINE SULFATE\DEXTROAMPHETAMINE SACCHARATE\DEXTROAMPHETAMINE SULFATE
  17. EHT VITAMINS [Concomitant]

REACTIONS (1)
  - Weight increased [None]

NARRATIVE: CASE EVENT DATE: 20180319
